FAERS Safety Report 4502943-7 (Version None)
Quarter: 2004Q4

REPORT INFORMATION
  Report Type: 
  Country: None (occurrence: None)
  Receive Date: 20041112
  Receipt Date: 20041104
  Transmission Date: 20050328
  Serious: Yes (Hospitalization)
  Sender: FDA-Public Use
  Company Number: 2004UW22813

PATIENT
  Age: 63 Year
  Sex: Female

DRUGS (2)
  1. XYLOCAINE [Suspect]
     Dosage: 10 ML DAILY
  2. KENALOG-40 [Suspect]

REACTIONS (2)
  - LIFE SUPPORT [None]
  - SEPSIS [None]
